FAERS Safety Report 10868895 (Version 2)
Quarter: 2015Q2

REPORT INFORMATION
  Report Type: Spontaneous
  Country: FR (occurrence: FR)
  Receive Date: 20150225
  Receipt Date: 20150525
  Transmission Date: 20150821
  Serious: Yes (Death, Congenital Anomaly)
  Sender: FDA-Public Use
  Company Number: FR-ASTRAZENECA-2015SE18086

PATIENT
  Sex: Male

DRUGS (4)
  1. SPECIAFOLDINE [Suspect]
     Active Substance: FOLIC ACID
     Route: 064
  2. MOPRAL [Suspect]
     Active Substance: OMEPRAZOLE SODIUM
     Route: 064
     Dates: start: 20150105
  3. RANIPLEX [Suspect]
     Active Substance: RANITIDINE HYDROCHLORIDE
     Route: 064
     Dates: start: 20141128, end: 20141228
  4. IMUREL [Suspect]
     Active Substance: AZATHIOPRINE SODIUM
     Indication: CROHN^S DISEASE
     Route: 064
     Dates: start: 201402

REACTIONS (1)
  - Spina bifida [Fatal]

NARRATIVE: CASE EVENT DATE: 201501
